FAERS Safety Report 13445419 (Version 1)
Quarter: 2017Q2

REPORT INFORMATION
  Report Type: Spontaneous
  Country: IT (occurrence: IT)
  Receive Date: 20170415
  Receipt Date: 20170415
  Transmission Date: 20170830
  Serious: Yes (Other)
  Sender: FDA-Public Use
  Company Number: IT-SUN PHARMACEUTICAL INDUSTRIES LTD-2015R1-98369

PATIENT
  Age: 42 Year
  Sex: Male

DRUGS (2)
  1. CLOZAPINE. [Suspect]
     Active Substance: CLOZAPINE
     Indication: SCHIZOPHRENIA
     Dosage: 450 MG, DAILY
     Route: 065
  2. HALOPERIDOL. [Suspect]
     Active Substance: HALOPERIDOL
     Indication: PRODUCT USED FOR UNKNOWN INDICATION
     Dosage: UP TO 6 MG, DAILY
     Route: 065

REACTIONS (7)
  - Orthostatic hypotension [Recovering/Resolving]
  - Sexual dysfunction [Recovering/Resolving]
  - Extrapyramidal disorder [Recovering/Resolving]
  - Sedation [Recovering/Resolving]
  - Drug ineffective [Unknown]
  - Drooling [Recovering/Resolving]
  - Drug intolerance [Recovering/Resolving]
